FAERS Safety Report 5379929-6 (Version None)
Quarter: 2007Q3

REPORT INFORMATION
  Report Type: 
  Country: None (occurrence: None)
  Receive Date: 20070706
  Receipt Date: 20070626
  Transmission Date: 20080115
  Serious: Yes (Other)
  Sender: FDA-Public Use
  Company Number: PHEH2007US09481

PATIENT
  Sex: Male

DRUGS (3)
  1. NORVASC [Suspect]
  2. COZAAR [Suspect]
  3. HYDROCHLOROTHIAZIDE [Suspect]
     Indication: HYPERTENSION

REACTIONS (1)
  - DIABETES MELLITUS INADEQUATE CONTROL [None]
